FAERS Safety Report 12141954 (Version 2)
Quarter: 2016Q2

REPORT INFORMATION
  Report Type: Spontaneous
  Country: FR (occurrence: FR)
  Receive Date: 20160303
  Receipt Date: 20160504
  Transmission Date: 20160815
  Serious: Yes (Life-Threatening, Hospitalization)
  Sender: FDA-Public Use
  Company Number: FR-BRACCO-002172

PATIENT
  Age: 68 Year
  Sex: Male

DRUGS (8)
  1. COVERSYL [Concomitant]
     Active Substance: PERINDOPRIL
  2. MULTIHANCE [Suspect]
     Active Substance: GADOBENATE DIMEGLUMINE
     Indication: NUCLEAR MAGNETIC RESONANCE IMAGING HEART
     Dosage: INTRAVENOUS PERFUSION
     Route: 042
     Dates: start: 20160127, end: 20160127
  3. KARDEGIC [Concomitant]
     Active Substance: ASPIRIN LYSINE
  4. BISOCE [Concomitant]
     Active Substance: BISOPROLOL
  5. AMLODIPINE [Concomitant]
     Active Substance: AMLODIPINE BESYLATE
  6. TAHOR [Concomitant]
     Active Substance: ATORVASTATIN CALCIUM
  7. CLOPIDOGREL [Concomitant]
     Active Substance: CLOPIDOGREL BISULFATE
  8. PANTOPRAZOLE [Concomitant]
     Active Substance: PANTOPRAZOLE SODIUM

REACTIONS (2)
  - Anaphylactic shock [Recovered/Resolved]
  - Kounis syndrome [Recovered/Resolved]

NARRATIVE: CASE EVENT DATE: 20160127
